FAERS Safety Report 4674991-8 (Version None)
Quarter: 2005Q2

REPORT INFORMATION
  Report Type: 
  Country: None (occurrence: None)
  Receive Date: 20050525
  Receipt Date: 20050510
  Transmission Date: 20051028
  Serious: Yes (Other)
  Sender: FDA-Public Use
  Company Number: B0380860A

PATIENT
  Age: 34 Year
  Sex: Female

DRUGS (2)
  1. FLOLAN [Suspect]
     Indication: HYPOXIA
     Dosage: VARIABLE DOSE / INTRAVENOUS
     Route: 042
  2. LIDOCAINE HCL [Suspect]
     Indication: ANAESTHESIA

REACTIONS (4)
  - CAESAREAN SECTION [None]
  - DRUG EXPOSURE DURING PREGNANCY [None]
  - HYPOXIA [None]
  - METABOLIC ACIDOSIS [None]
